FAERS Safety Report 6663581-3 (Version None)
Quarter: 2010Q2

REPORT INFORMATION
  Report Type: 
  Country: None (occurrence: None)
  Receive Date: 20100401
  Receipt Date: 20100324
  Transmission Date: 20101027
  Serious: Yes (Hospitalization)
  Sender: FDA-Public Use
  Company Number: JP-ROCHE-599959

PATIENT
  Sex: Male
  Weight: 37.1 kg

DRUGS (24)
  1. TOCILIZUMAB [Suspect]
     Indication: CASTLEMAN'S DISEASE
     Route: 041
     Dates: start: 20051004, end: 20051101
  2. TOCILIZUMAB [Suspect]
     Dosage: DOSE DECREASED
     Route: 041
     Dates: start: 20051129, end: 20051227
  3. TOCILIZUMAB [Suspect]
     Route: 041
     Dates: start: 20060117, end: 20061020
  4. TOCILIZUMAB [Suspect]
     Route: 041
     Dates: start: 20061117, end: 20080401
  5. TOCILIZUMAB [Suspect]
     Route: 041
     Dates: start: 20080425, end: 20080425
  6. TOCILIZUMAB [Suspect]
     Route: 041
     Dates: start: 20080522, end: 20081204
  7. TOCILIZUMAB [Suspect]
     Route: 041
     Dates: start: 20090115
  8. PREDNISOLONE [Suspect]
     Indication: CASTLEMAN'S DISEASE
     Route: 048
  9. LANSOPRAZOLE [Concomitant]
     Route: 048
  10. NU-LOTAN [Concomitant]
     Route: 048
     Dates: end: 20051129
  11. NU-LOTAN [Concomitant]
     Route: 048
     Dates: start: 20051130, end: 20060117
  12. NU-LOTAN [Concomitant]
     Route: 048
     Dates: start: 20060118, end: 20060228
  13. NU-LOTAN [Concomitant]
     Route: 048
     Dates: start: 20060301, end: 20081110
  14. NU-LOTAN [Concomitant]
     Route: 048
     Dates: start: 20081111
  15. ALLOPURINOL [Concomitant]
     Dosage: DRUG REPORTED-MINIPLANOR
     Route: 048
  16. ALFACALCIDOL [Concomitant]
     Dosage: DRUG REPORTED- ALFASULY
     Route: 048
  17. LENDORMIN [Concomitant]
     Route: 048
  18. FLOMOX [Concomitant]
     Route: 048
     Dates: start: 20051129, end: 20051205
  19. DASEN [Concomitant]
     Dosage: DOSE FORM- ORAL FORMULATION (NOT OTHERWISE SPECIFIED)
     Route: 048
     Dates: start: 20051129, end: 20051205
  20. MARZULENE-S [Concomitant]
     Route: 048
     Dates: start: 20051129, end: 20051205
  21. MARZULENE-S [Concomitant]
     Route: 048
     Dates: start: 20060306, end: 20060306
  22. LOXONIN [Concomitant]
     Dosage: DOSE FORM-ORAL FORMULATION
     Route: 048
     Dates: start: 20060306, end: 20060306
  23. CEFACLOR [Concomitant]
     Route: 048
     Dates: start: 20060306, end: 20060307
  24. SODIUM AZULENE SULFONATE [Concomitant]
     Dosage: DOSE FORM: GRANULATED POWDER. MARZULENE-S(SODIUM AZULENE SULFONATE_L-GLUTAMINE)
     Route: 048
     Dates: start: 20060306, end: 20060306

REACTIONS (10)
  - CEREBRAL HAEMORRHAGE [None]
  - HYPOAESTHESIA [None]
  - LYMPHADENOPATHY [None]
  - MALAISE [None]
  - NASOPHARYNGITIS [None]
  - OROPHARYNGEAL PAIN [None]
  - PYREXIA [None]
  - SINUS TACHYCARDIA [None]
  - SUPRAVENTRICULAR EXTRASYSTOLES [None]
  - UPPER RESPIRATORY TRACT INFLAMMATION [None]
